FAERS Safety Report 7470977-9 (Version None)
Quarter: 2011Q2

REPORT INFORMATION
  Report Type: 
  Country: None (occurrence: None)
  Receive Date: 20110510
  Receipt Date: 20110508
  Transmission Date: 20111010
  Serious: No
  Sender: FDA-Public Use
  Company Number: US-PFIZER INC-2011098668

PATIENT
  Sex: Female
  Weight: 89.342 kg

DRUGS (4)
  1. LYRICA [Suspect]
     Indication: NEUROPATHY PERIPHERAL
     Dosage: 100 MG, 1X/DAY
     Route: 048
     Dates: start: 20110505, end: 20110505
  2. AMBIEN [Concomitant]
     Indication: INSOMNIA
     Dosage: UNK
  3. ATIVAN [Concomitant]
     Indication: ANXIETY
     Dosage: UNK
  4. LEVOTHYROXINE [Concomitant]
     Indication: HYPOTHYROIDISM
     Dosage: UNK

REACTIONS (3)
  - DRY MOUTH [None]
  - GAIT DISTURBANCE [None]
  - DIZZINESS [None]
